FAERS Safety Report 19262369 (Version 2)
Quarter: 2021Q3

REPORT INFORMATION
  Report Type: Spontaneous
  Country: JP (occurrence: JP)
  Receive Date: 20210516
  Receipt Date: 20210708
  Transmission Date: 20211014
  Serious: Yes (Life-Threatening, Other)
  Sender: FDA-Public Use
  Company Number: JP-TAKEDA-2021TJP024180

PATIENT
  Age: 6 Month
  Sex: Male
  Weight: 7 kg

DRUGS (13)
  1. ALFAROL [Concomitant]
     Active Substance: ALFACALCIDOL
     Indication: NUTRITIONAL SUPPLEMENTATION
     Dosage: 0.21 MILLIGRAM, QD
     Route: 048
     Dates: start: 20200805
  2. SODIUM CHLORIDE. [Concomitant]
     Active Substance: SODIUM CHLORIDE
     Indication: INFUSION
     Dosage: UNK
     Route: 041
     Dates: start: 20210201, end: 20210202
  3. TOCOPHERYL ACETATE [Concomitant]
     Active Substance: .ALPHA.-TOCOPHEROL ACETATE
     Indication: NUTRITIONAL SUPPLEMENTATION
     Dosage: 40 MILLIGRAM, BID
     Dates: start: 20200805
  4. TOPIRAMATE. [Concomitant]
     Active Substance: TOPIRAMATE
     Dosage: 10MG MOR. 14 MG EVENING, BID
     Route: 048
     Dates: start: 20210120
  5. BUCCOLAM OROMUCOSAL SOLUTION 2.5MG [Suspect]
     Active Substance: MIDAZOLAM HYDROCHLORIDE
     Indication: SEIZURE
     Dosage: 2.5 MG, PRN
     Route: 050
     Dates: start: 20210202
  6. HEPARIN [Concomitant]
     Active Substance: HEPARIN SODIUM
     Indication: INFUSION
     Dosage: UNK
     Route: 041
     Dates: start: 20210201, end: 20210202
  7. CHOCOLA A [Concomitant]
     Indication: NUTRITIONAL SUPPLEMENTATION
     Dosage: UNK UNK, TID
     Route: 048
     Dates: start: 20200805
  8. CHOCOLA A [Concomitant]
     Dosage: 40 MILLIGRAM, BID
     Route: 048
     Dates: start: 20200805
  9. URSO [Concomitant]
     Active Substance: URSODIOL
     Indication: NUTRITIONAL SUPPLEMENTATION
     Dosage: 28 MILLIGRAM, BID
     Route: 048
     Dates: start: 20200805
  10. TOPIRAMATE. [Concomitant]
     Active Substance: TOPIRAMATE
     Indication: EPILEPSY
     Dosage: 10MG MOR. 14 MG EVENING, BID
     Route: 048
     Dates: start: 20210120
  11. PHENOBAL [Concomitant]
     Active Substance: PHENOBARBITAL
     Indication: EPILEPSY
     Dosage: 20 MILLIGRAM, BID
     Route: 048
     Dates: start: 20200905
  12. MYSTAN [Concomitant]
     Active Substance: CLOBAZAM
     Indication: EPILEPSY
     Dosage: 1 MILLIGRAM, BID
     Route: 048
     Dates: start: 20201126
  13. TEGRETOL [Concomitant]
     Active Substance: CARBAMAZEPINE
     Indication: EPILEPSY
     Dosage: 53 MILLIGRAM, TID
     Route: 048
     Dates: start: 20201028, end: 20210608

REACTIONS (1)
  - Respiratory arrest [Recovered/Resolved]

NARRATIVE: CASE EVENT DATE: 20210202
